FAERS Safety Report 8869691 (Version 1)
Quarter: 2012Q4

REPORT INFORMATION
  Report Type: Report from Study
  Country: CA (occurrence: CA)
  Receive Date: 20121028
  Receipt Date: 20121028
  Transmission Date: 20130627
  Serious: Yes (Other)
  Sender: FDA-Public Use
  Company Number: CA-JNJFOC-20121009706

PATIENT
  Sex: Male
  Weight: 62.7 kg

DRUGS (3)
  1. REMICADE [Suspect]
     Indication: CROHN^S DISEASE
     Dosage: dosing frequency: at week 0, 2, 6 and every 8 weeks
     Route: 042
     Dates: start: 201209
  2. REMICADE [Suspect]
     Indication: CROHN^S DISEASE
     Route: 042
     Dates: start: 20121016
  3. REMICADE [Suspect]
     Indication: CROHN^S DISEASE
     Dosage: dosing frequency: at week 0, 2, 6 and every 8 weeks
     Route: 042
     Dates: start: 201209

REACTIONS (3)
  - Dehydration [Not Recovered/Not Resolved]
  - Nausea [Not Recovered/Not Resolved]
  - Vomiting [Not Recovered/Not Resolved]
